FAERS Safety Report 5036780-4 (Version None)
Quarter: 2006Q2

REPORT INFORMATION
  Report Type: 
  Country: None (occurrence: None)
  Receive Date: 20060622
  Receipt Date: 20060609
  Transmission Date: 20061013
  Serious: Yes (Hospitalization)
  Sender: FDA-Public Use
  Company Number: 226138

PATIENT
  Age: 48 Year
  Sex: Female

DRUGS (5)
  1. AVASTIN [Suspect]
     Indication: BLADDER CANCER
     Dosage: 15 MG/KG Q3W INTRAVENOUS
     Route: 042
  2. GEMCITABINE [Concomitant]
  3. CISPLATIN [Concomitant]
  4. PAXIL [Concomitant]
  5. PREMARIN [Concomitant]

REACTIONS (2)
  - ENTEROVESICAL FISTULA [None]
  - POST PROCEDURAL URINE LEAK [None]
